FAERS Safety Report 7101669-3 (Version None)
Quarter: 2010Q4

REPORT INFORMATION
  Report Type: 
  Country: None (occurrence: None)
  Receive Date: 20101115
  Receipt Date: 20101108
  Transmission Date: 20110411
  Serious: Yes (Hospitalization)
  Sender: FDA-Public Use
  Company Number: CH-BAYER-201039690GPV

PATIENT
  Age: 50 Year
  Sex: Female
  Weight: 77 kg

DRUGS (2)
  1. QLAIRA [Suspect]
     Indication: CONTRACEPTION
     Route: 048
     Dates: end: 20100908
  2. CERAZETTE [Concomitant]
     Indication: UTERINE LEIOMYOMA

REACTIONS (6)
  - ASTHENIA [None]
  - DYSPNOEA [None]
  - HAEMOGLOBIN DECREASED [None]
  - MENORRHAGIA [None]
  - PULMONARY EMBOLISM [None]
  - UTERINE LEIOMYOMA [None]
